FAERS Safety Report 10978286 (Version 2)
Quarter: 2015Q2

REPORT INFORMATION
  Report Type: Report from Study
  Country: BR (occurrence: BR)
  Receive Date: 20150402
  Receipt Date: 20150402
  Transmission Date: 20150821
  Serious: Yes (Other)
  Sender: FDA-Public Use
  Company Number: PHHY2015BR038757

PATIENT
  Sex: Female
  Weight: 65 kg

DRUGS (3)
  1. SANDOSTATIN LAR DEPOT [Suspect]
     Active Substance: OCTREOTIDE ACETATE
     Indication: LUNG NEOPLASM MALIGNANT
     Dosage: UNK (MONTHLY)
     Route: 065
  2. AFINITOR [Suspect]
     Active Substance: EVEROLIMUS
     Indication: PRODUCT USED FOR UNKNOWN INDICATION
     Dosage: UNK
     Route: 065
  3. TRAVATAN [Suspect]
     Active Substance: TRAVOPROST
     Indication: GLAUCOMA
     Dosage: UNK (ONCE DAILY)
     Route: 065

REACTIONS (8)
  - Off label use [Unknown]
  - Body height decreased [Not Recovered/Not Resolved]
  - Malaise [Not Recovered/Not Resolved]
  - Glaucoma [Not Recovered/Not Resolved]
  - Hypoacusis [Not Recovered/Not Resolved]
  - Aphasia [Not Recovered/Not Resolved]
  - Visual acuity reduced [Unknown]
  - Renal atrophy [Not Recovered/Not Resolved]
